FAERS Safety Report 7278689-1 (Version None)
Quarter: 2011Q1

REPORT INFORMATION
  Report Type: 
  Country: None (occurrence: None)
  Receive Date: 20110207
  Receipt Date: 20110125
  Transmission Date: 20110831
  Serious: Yes (Disabling)
  Sender: FDA-Public Use
  Company Number: PHHY2011GB05726

PATIENT
  Age: 17 Year
  Sex: Female

DRUGS (2)
  1. MIRTAZAPINE [Suspect]
     Dosage: 1 MG, EVERY 5 DAYS
     Route: 048
  2. MIRTAZAPINE [Suspect]
     Indication: DEPRESSION
     Dosage: UNK
     Route: 048
     Dates: start: 20100527

REACTIONS (12)
  - AGITATION [None]
  - TINNITUS [None]
  - EAR DISORDER [None]
  - ANXIETY [None]
  - IRRITABILITY [None]
  - SLEEP DISORDER [None]
  - PRESYNCOPE [None]
  - ILLUSION [None]
  - WITHDRAWAL SYNDROME [None]
  - ABNORMAL DREAMS [None]
  - HEADACHE [None]
  - NAUSEA [None]
